FAERS Safety Report 15116935 (Version 8)
Quarter: 2020Q2

REPORT INFORMATION
  Report Type: Spontaneous
  Country: BR (occurrence: BR)
  Receive Date: 20180706
  Receipt Date: 20200512
  Transmission Date: 20200713
  Serious: Yes (Death, Hospitalization, Other)
  Sender: FDA-Public Use
  Company Number: BR-JNJFOC-20180101446

PATIENT
  Age: 77 Year
  Sex: Male

DRUGS (14)
  1. RIVAROXABAN [Suspect]
     Active Substance: RIVAROXABAN
     Indication: CEREBROVASCULAR ACCIDENT
     Dosage: 15 MG, QD
     Route: 048
     Dates: start: 201806, end: 201807
  2. RIVAROXABAN [Suspect]
     Active Substance: RIVAROXABAN
     Indication: ATRIAL FIBRILLATION
     Dosage: 15 MG, QD
     Route: 048
     Dates: start: 201811
  3. LOSARTAN. [Concomitant]
     Active Substance: LOSARTAN
     Indication: HYPERTENSION
     Dosage: 2 DF, QD
     Route: 048
     Dates: start: 2012
  4. RIVAROXABAN [Suspect]
     Active Substance: RIVAROXABAN
     Indication: ARRHYTHMIA
     Route: 048
     Dates: start: 2016, end: 2017
  5. METFORMINA [METFORMIN] [Concomitant]
     Active Substance: METFORMIN HYDROCHLORIDE
     Indication: DIABETES MELLITUS
     Dosage: 3 UNK
     Route: 048
     Dates: start: 2005
  6. SELOZOK [Concomitant]
     Active Substance: METOPROLOL SUCCINATE
     Dosage: 1 DF, QD
     Route: 048
     Dates: start: 2016
  7. GALANTAMINE. [Concomitant]
     Active Substance: GALANTAMINE
     Indication: DEMENTIA ALZHEIMER^S TYPE
  8. INSULIN [Concomitant]
     Active Substance: INSULIN NOS
     Indication: DIABETES MELLITUS
     Dosage: 5 U, UNK
     Route: 058
     Dates: start: 2005
  9. SIMVASTATIN. [Concomitant]
     Active Substance: SIMVASTATIN
     Indication: BLOOD CHOLESTEROL ABNORMAL
     Dosage: 1 DF, QD
     Route: 048
     Dates: start: 2008
  10. RIVAROXABAN [Suspect]
     Active Substance: RIVAROXABAN
     Indication: ARTERIAL THERAPEUTIC PROCEDURE
     Dosage: 15 MG, QD
     Route: 048
     Dates: start: 201709, end: 2017
  11. RIVAROXABAN [Suspect]
     Active Substance: RIVAROXABAN
     Indication: LEFT VENTRICULAR HYPERTROPHY
  12. AAS [Concomitant]
     Active Substance: ASPIRIN
     Indication: ANTICOAGULANT THERAPY
     Dosage: 1 DF, QD
     Route: 048
     Dates: start: 2012
  13. RIVAROXABAN [Suspect]
     Active Substance: RIVAROXABAN
     Indication: CAROTID ARTERY THROMBOSIS
  14. ESPIRONOLACTONA [Concomitant]
     Active Substance: SPIRONOLACTONE
     Dosage: 1 TABLET IN THE MORNING
     Route: 048
     Dates: start: 2016

REACTIONS (41)
  - Dementia Alzheimer^s type [Unknown]
  - Dizziness [Not Recovered/Not Resolved]
  - Irritability [Not Recovered/Not Resolved]
  - Melaena [Not Recovered/Not Resolved]
  - Pleural effusion [Unknown]
  - Anaemia [Not Recovered/Not Resolved]
  - Gastric haemorrhage [Not Recovered/Not Resolved]
  - Head discomfort [Not Recovered/Not Resolved]
  - Haematochezia [Unknown]
  - Gastric disorder [Not Recovered/Not Resolved]
  - Gastric ulcer [Unknown]
  - Oesophageal haemorrhage [Unknown]
  - Haematochezia [Unknown]
  - Pain in extremity [Unknown]
  - Faeces discoloured [Unknown]
  - Gastric cancer [Unknown]
  - Gastric haemorrhage [Not Recovered/Not Resolved]
  - Gastric ulcer [Unknown]
  - Haematochezia [Unknown]
  - Abdominal pain upper [Unknown]
  - Gastric ulcer [Not Recovered/Not Resolved]
  - Gastritis [Unknown]
  - Off label use [Unknown]
  - Occult blood positive [Unknown]
  - Hypovolaemic shock [Fatal]
  - Oesophageal haemorrhage [Unknown]
  - Cerebrovascular accident [Unknown]
  - Abdominal pain upper [Not Recovered/Not Resolved]
  - Haematemesis [Not Recovered/Not Resolved]
  - Syncope [Not Recovered/Not Resolved]
  - Haematemesis [Unknown]
  - Anaemia [Not Recovered/Not Resolved]
  - Somnolence [Not Recovered/Not Resolved]
  - Feeling abnormal [Unknown]
  - Haematemesis [Unknown]
  - Pneumonia [Unknown]
  - Faeces discoloured [Not Recovered/Not Resolved]
  - Cough [Not Recovered/Not Resolved]
  - Gastric haemorrhage [Unknown]
  - Fatigue [Unknown]
  - Product use in unapproved indication [Unknown]

NARRATIVE: CASE EVENT DATE: 2016
